FAERS Safety Report 9306506 (Version 1)
Quarter: 2013Q2

REPORT INFORMATION
  Report Type: Spontaneous
  Country: US (occurrence: US)
  Receive Date: 20130523
  Receipt Date: 20130523
  Transmission Date: 20140414
  Serious: No
  Sender: FDA-Public Use
  Company Number: US-ASTRAZENECA-2013SE32616

PATIENT
  Age: 75 Year
  Sex: Female
  Weight: 72.6 kg

DRUGS (5)
  1. CRESTOR [Suspect]
     Indication: BLOOD CHOLESTEROL
     Route: 048
     Dates: start: 20130507
  2. LISINOPRIL [Suspect]
     Indication: BLOOD PRESSURE
     Route: 048
  3. METOPROLOL SUCCINATE [Suspect]
     Indication: BLOOD PRESSURE
     Route: 048
  4. ASPIRIN [Concomitant]
     Indication: CEREBROVASCULAR ACCIDENT
     Route: 048
  5. POTASSIUM [Concomitant]
     Indication: BLOOD POTASSIUM DECREASED
     Dosage: 8 MEQ SA DAILY
     Route: 048

REACTIONS (3)
  - Pain [Unknown]
  - Myalgia [Unknown]
  - Pruritus [Unknown]
